FAERS Safety Report 7967276-5 (Version None)
Quarter: 2011Q4

REPORT INFORMATION
  Report Type: 
  Country: None (occurrence: None)
  Receive Date: 20111208
  Receipt Date: 20111208
  Transmission Date: 20120403
  Serious: Yes (Other)
  Sender: FDA-Public Use
  Company Number: None

PATIENT
  Age: 69 Year
  Sex: Male

DRUGS (5)
  1. NIACIN [Concomitant]
  2. REVLIMID [Suspect]
     Indication: MULTIPLE MYELOMA
     Dosage: 5 MG DAILY X21D/28D ORALLY
     Route: 048
  3. TERAZOSIN [Concomitant]
  4. FINASTERIDE [Concomitant]
  5. SIMVASTATIN [Concomitant]

REACTIONS (1)
  - PLATELET COUNT DECREASED [None]
